FAERS Safety Report 4283551-2 (Version None)
Quarter: 2004Q1

REPORT INFORMATION
  Report Type: 
  Country: None (occurrence: None)
  Receive Date: 20040120
  Receipt Date: 20030604
  Transmission Date: 20041129
  Serious: Yes (Other)
  Sender: FDA-Public Use
  Company Number: US-JNJFOC-20030600112

PATIENT
  Age: 33 Year
  Sex: Female
  Weight: 63.5036 kg

DRUGS (1)
  1. COPPER T MODEL TCU 380A [Suspect]
     Indication: CONTRACEPTION
     Dosage: INTRA-UTERNINE
     Route: 015
     Dates: start: 20001001

REACTIONS (2)
  - IUCD COMPLICATION [None]
  - PREGNANCY [None]
